FAERS Safety Report 24912236 (Version 3)
Quarter: 2025Q1

REPORT INFORMATION
  Report Type: Spontaneous
  Country: US (occurrence: US)
  Receive Date: 20250131
  Receipt Date: 20250319
  Transmission Date: 20250409
  Serious: Yes (Hospitalization, Other)
  Sender: SANOFI AVENTIS
  Company Number: US-SA-2025SA029503

PATIENT
  Age: 54 Year
  Sex: Male

DRUGS (24)
  1. REZUROCK [Suspect]
     Active Substance: BELUMOSUDIL
     Indication: Chronic graft versus host disease
     Dosage: 200 MG, QD
     Route: 048
     Dates: start: 20250118
  2. REZUROCK [Suspect]
     Active Substance: BELUMOSUDIL
     Dosage: 200 MG, BID
     Route: 048
     Dates: start: 2025
  3. REZUROCK [Suspect]
     Active Substance: BELUMOSUDIL
     Dosage: 200 MG, QD
     Route: 048
     Dates: start: 202502
  4. ACYCLOVIR [Concomitant]
     Active Substance: ACYCLOVIR
  5. ACYCLOVIR [Concomitant]
     Active Substance: ACYCLOVIR
  6. ACYCLOVIR [Concomitant]
     Active Substance: ACYCLOVIR
  7. AMIODARONE [Concomitant]
     Active Substance: AMIODARONE
  8. BACTRIM [Concomitant]
     Active Substance: SULFAMETHOXAZOLE\TRIMETHOPRIM
  9. BACTRIM [Concomitant]
     Active Substance: SULFAMETHOXAZOLE\TRIMETHOPRIM
  10. BACTRIM [Concomitant]
     Active Substance: SULFAMETHOXAZOLE\TRIMETHOPRIM
  11. CALCIUM [Concomitant]
     Active Substance: CALCIUM
  12. CLOBETASOL PROPIONATE [Concomitant]
     Active Substance: CLOBETASOL PROPIONATE
  13. VITAMINS [Concomitant]
     Active Substance: VITAMINS
  14. VITAMIN B12 [Concomitant]
     Active Substance: CYANOCOBALAMIN
  15. DEXAMETHASONE [Concomitant]
     Active Substance: DEXAMETHASONE
  16. DEXAMETHASONE [Concomitant]
     Active Substance: DEXAMETHASONE
  17. ELIQUIS [Concomitant]
     Active Substance: APIXABAN
  18. ELIQUIS [Concomitant]
     Active Substance: APIXABAN
  19. METOPROLOL [Concomitant]
     Active Substance: METOPROLOL
  20. PREVYMIS [Concomitant]
     Active Substance: LETERMOVIR
  21. PREVYMIS [Concomitant]
     Active Substance: LETERMOVIR
  22. TACROLIMUS [Concomitant]
     Active Substance: TACROLIMUS
  23. TRIAMCINOLONE [Concomitant]
     Active Substance: TRIAMCINOLONE
  24. PREDNISONE [Concomitant]
     Active Substance: PREDNISONE

REACTIONS (4)
  - Influenza [Recovering/Resolving]
  - Pneumonia [Recovering/Resolving]
  - Disease progression [Unknown]
  - Inappropriate schedule of product administration [Unknown]

NARRATIVE: CASE EVENT DATE: 20250101
